FAERS Safety Report 10174291 (Version 2)
Quarter: 2014Q2

REPORT INFORMATION
  Report Type: Spontaneous
  Country: US (occurrence: CA)
  Receive Date: 20140515
  Receipt Date: 20140606
  Transmission Date: 20141212
  Serious: Yes (Hospitalization, Other)
  Sender: FDA-Public Use
  Company Number: CA-FRI-1000067336

PATIENT
  Age: 84 Year
  Sex: Male
  Weight: 54 kg

DRUGS (7)
  1. ROFLUMILAST [Suspect]
     Indication: CHRONIC OBSTRUCTIVE PULMONARY DISEASE
     Dosage: 500 MG
     Dates: start: 20130131
  2. ALVESCO [Concomitant]
  3. PREDNISONE [Concomitant]
  4. SALBUTAMOL [Concomitant]
  5. SINGULAIR [Concomitant]
  6. SPIRIVA [Concomitant]
  7. SYMBICORT [Concomitant]

REACTIONS (1)
  - Respiratory tract infection [Not Recovered/Not Resolved]
